FAERS Safety Report 7961572-3 (Version None)
Quarter: 2011Q4

REPORT INFORMATION
  Report Type: 
  Country: None (occurrence: None)
  Receive Date: 20111207
  Receipt Date: 20111125
  Transmission Date: 20120403
  Serious: Yes (Hospitalization)
  Sender: FDA-Public Use
  Company Number: JP-SANOFI-AVENTIS-2011SA074680

PATIENT
  Sex: Female

DRUGS (3)
  1. DOCETAXEL [Suspect]
     Route: 065
     Dates: start: 20111107
  2. TRASTUZUMAB [Concomitant]
     Dates: start: 20110926, end: 20111107
  3. DOCETAXEL [Suspect]
     Route: 065

REACTIONS (2)
  - RESPIRATORY FAILURE [None]
  - ANAPHYLACTIC REACTION [None]
